FAERS Safety Report 9819604 (Version 1)
Quarter: 2014Q1

REPORT INFORMATION
  Report Type: Spontaneous
  Country: US (occurrence: US)
  Receive Date: 20140115
  Receipt Date: 20140115
  Transmission Date: 20141002
  Serious: Yes (Life-Threatening, Hospitalization, Other)
  Sender: FDA-Public Use
  Company Number: CHPA2014US000848

PATIENT
  Age: 63 Year
  Sex: Male

DRUGS (5)
  1. EXCEDRIN MIGRAINE [Suspect]
     Indication: MYOCARDIAL INFARCTION
     Dosage: 1 - 2 DF, UNK
     Route: 048
     Dates: start: 2012, end: 20131227
  2. EXCEDRIN MIGRAINE [Suspect]
     Indication: PAIN
  3. EXCEDRIN MIGRAINE [Suspect]
     Indication: OFF LABEL USE
  4. TUMS [Suspect]
     Indication: GASTROOESOPHAGEAL REFLUX DISEASE
     Dosage: UNK
     Dates: start: 2013
  5. NEXIUM 1-2-3 [Concomitant]
     Indication: GASTROOESOPHAGEAL REFLUX DISEASE

REACTIONS (11)
  - Myocardial infarction [Recovered/Resolved]
  - Blood pressure decreased [Recovered/Resolved]
  - Heart rate decreased [Recovered/Resolved]
  - Hypertension [Unknown]
  - Blood cholesterol increased [Unknown]
  - Chest pain [Recovered/Resolved]
  - Pain [Recovered/Resolved]
  - Therapeutic response unexpected [Unknown]
  - Wrong technique in drug usage process [Unknown]
  - Expired drug administered [Unknown]
  - Incorrect dose administered [Unknown]
